FAERS Safety Report 4282509-7 (Version None)
Quarter: 2004Q1

REPORT INFORMATION
  Report Type: 
  Country: None (occurrence: None)
  Receive Date: 20040129
  Receipt Date: 20040119
  Transmission Date: 20041129
  Serious: Yes (Hospitalization)
  Sender: FDA-Public Use
  Company Number: US-JNJFOC-20040103696

PATIENT
  Age: 38 Year
  Sex: Female
  Weight: 63.5036 kg

DRUGS (1)
  1. DITROPAN XL [Suspect]
     Indication: INCONTINENCE
     Dosage: 10 MG ORAL
     Route: 048
     Dates: start: 20030301

REACTIONS (4)
  - DIARRHOEA [None]
  - INTERVERTEBRAL DISC INJURY [None]
  - ROAD TRAFFIC ACCIDENT [None]
  - VOMITING [None]
